FAERS Safety Report 5253716-1 (Version None)
Quarter: 2007Q1

REPORT INFORMATION
  Report Type: 
  Country: None (occurrence: None)
  Receive Date: 20061201
  Receipt Date: 20060803
  Transmission Date: 20070707
  Serious: No
  Sender: FDA-Public Use
  Company Number: 2006PV018798

PATIENT
  Age: 61 Year
  Sex: Male
  Weight: 136.0791 kg

DRUGS (6)
  1. BYETTA [Suspect]
     Indication: DIABETES MELLITUS NON-INSULIN-DEPENDENT
     Dosage: SEE IMAGE
     Route: 058
     Dates: start: 20060601, end: 20060719
  2. BYETTA [Suspect]
     Indication: DIABETES MELLITUS NON-INSULIN-DEPENDENT
     Dosage: SEE IMAGE
     Route: 058
     Dates: start: 20060720
  3. METFORMIN HCL [Concomitant]
  4. GRIFULVIN V [Concomitant]
  5. ACTOS [Concomitant]
  6. DIOVAN [Concomitant]

REACTIONS (4)
  - BREATH ODOUR [None]
  - DECREASED APPETITE [None]
  - DYSGEUSIA [None]
  - THERAPEUTIC RESPONSE UNEXPECTED [None]
